FAERS Safety Report 7654063-0 (Version None)
Quarter: 2011Q3

REPORT INFORMATION
  Report Type: 
  Country: None (occurrence: None)
  Receive Date: 20110803
  Receipt Date: 20110722
  Transmission Date: 20111222
  Serious: Yes (Hospitalization, Other)
  Sender: FDA-Public Use
  Company Number: PHHY2011CH65929

PATIENT
  Age: 43 Year

DRUGS (14)
  1. POTASSIUM CHLORIDE [Concomitant]
     Dosage: 8 MMOL, QD
     Route: 048
  2. LEVEMIR [Concomitant]
     Dosage: UNK UKN, UNK
     Route: 058
  3. NOVORAPID [Concomitant]
     Dosage: UNK UKN, UNK
  4. ATORVASTATIN CALCIUM [Concomitant]
     Dosage: 40 MG, QD
     Route: 048
  5. RITALIN [Suspect]
     Dosage: 10 MG, QD
     Route: 048
     Dates: end: 20110624
  6. TOPAMAX [Concomitant]
     Dosage: 50 MG, QD
     Route: 048
  7. HYDROCORTISONE [Concomitant]
     Dosage: 30 MG, QD
     Route: 048
  8. MINIRIN [Concomitant]
     Dosage: UNK UKN, UNK
     Route: 045
  9. EFFEXOR [Concomitant]
     Dosage: 150 MG, QD
     Route: 048
  10. PANTOPRAZOLE [Concomitant]
     Dosage: 40 MG BOLUS DAILY
     Route: 042
  11. LEVOTHYROXINE SODIUM [Concomitant]
     Dosage: 0.15 MG, QD
     Route: 048
  12. FOSAMAX [Concomitant]
     Dosage: 70 MG, QW
     Route: 048
  13. ACETAMINOPHEN [Concomitant]
     Dosage: 4 G, QD
  14. CALCIMAGON-D3 [Concomitant]
     Dosage: UNK UKN, QD
     Route: 048

REACTIONS (12)
  - PYREXIA [None]
  - DISTURBANCE IN ATTENTION [None]
  - MUSCULOSKELETAL PAIN [None]
  - DIARRHOEA [None]
  - CHILLS [None]
  - NEUROLEPTIC MALIGNANT SYNDROME [None]
  - ALANINE AMINOTRANSFERASE INCREASED [None]
  - BLOOD CREATINE PHOSPHOKINASE INCREASED [None]
  - ASPARTATE AMINOTRANSFERASE INCREASED [None]
  - AGGRESSION [None]
  - CONFUSIONAL STATE [None]
  - TACHYCARDIA [None]
